FAERS Safety Report 4764567-6 (Version None)
Quarter: 2005Q3

REPORT INFORMATION
  Report Type: 
  Country: None (occurrence: None)
  Receive Date: 20050909
  Receipt Date: 20050901
  Transmission Date: 20060218
  Serious: Yes (Other)
  Sender: FDA-Public Use
  Company Number: PHEH2005US09770

PATIENT
  Age: 59 Year
  Sex: Male

DRUGS (1)
  1. VOLTAREN [Suspect]

REACTIONS (3)
  - AUTOIMMUNE THROMBOCYTOPENIA [None]
  - EYE HAEMORRHAGE [None]
  - PLATELET COUNT DECREASED [None]
